FAERS Safety Report 10286330 (Version 2)
Quarter: 2014Q3

REPORT INFORMATION
  Report Type: Spontaneous
  Country: IT (occurrence: IT)
  Receive Date: 20140709
  Receipt Date: 20140715
  Transmission Date: 20150326
  Serious: Yes (Hospitalization)
  Sender: FDA-Public Use
  Company Number: PHHY2014IT082523

PATIENT
  Age: 42 Year
  Sex: Female

DRUGS (5)
  1. DEPAKENE [Suspect]
     Active Substance: VALPROIC ACID
     Indication: SUICIDE ATTEMPT
     Route: 048
     Dates: start: 20140617, end: 20140617
  2. ABILIFY [Suspect]
     Active Substance: ARIPIPRAZOLE
     Indication: SUICIDE ATTEMPT
     Route: 048
     Dates: start: 20140617, end: 20140617
  3. VALDORM [Suspect]
     Active Substance: VALERIAN
     Indication: SUICIDE ATTEMPT
     Route: 048
     Dates: start: 20140617, end: 20140617
  4. CYMBALTA [Suspect]
     Active Substance: DULOXETINE HYDROCHLORIDE
     Indication: SUICIDE ATTEMPT
     Route: 048
     Dates: start: 20140617, end: 20140617
  5. QUETIAPINE [Suspect]
     Active Substance: QUETIAPINE
     Indication: SUICIDE ATTEMPT
     Route: 048
     Dates: start: 20140617, end: 20140617

REACTIONS (2)
  - Drug abuse [Recovering/Resolving]
  - Coma [Recovering/Resolving]

NARRATIVE: CASE EVENT DATE: 20140617
